FAERS Safety Report 24532923 (Version 1)
Quarter: 2024Q4

REPORT INFORMATION
  Report Type: Spontaneous
  Country: US (occurrence: None)
  Receive Date: 20241021
  Receipt Date: 20241021
  Transmission Date: 20250114
  Serious: Yes (Other)
  Sender: Public
  Company Number: None

PATIENT
  Sex: Male

DRUGS (11)
  1. DALFAMPRIDINE [Suspect]
     Active Substance: DALFAMPRIDINE
     Indication: Multiple sclerosis
     Dosage: FREQUENCY : TWICE A DAY;?
     Route: 048
     Dates: start: 20210429
  2. ADVAIR DISKU AER [Concomitant]
  3. ALBUTEROL [Concomitant]
     Active Substance: ALBUTEROL
  4. ALLEGRA [Suspect]
     Active Substance: FEXOFENADINE HYDROCHLORIDE
  5. ATROVENT HFA AER [Concomitant]
  6. BACLOFEN [Concomitant]
     Active Substance: BACLOFEN
  7. BUDESONIDE [Concomitant]
  8. DALFAMPRODIN [Concomitant]
  9. A-HYDROCORT [Concomitant]
     Active Substance: HYDROCORTISONE SODIUM SUCCINATE
  10. METHSCOPOLAM POW BROMIDE [Concomitant]
  11. METHSCOPOLAM TAB [Concomitant]

REACTIONS (2)
  - Therapy interrupted [None]
  - Surgery [None]
